FAERS Safety Report 7617762-2 (Version None)
Quarter: 2011Q3

REPORT INFORMATION
  Report Type: 
  Country: None (occurrence: None)
  Receive Date: 20110718
  Receipt Date: 20110708
  Transmission Date: 20111222
  Serious: Yes (Other)
  Sender: FDA-Public Use
  Company Number: US-JNJFOC-20061006819

PATIENT
  Sex: Male
  Weight: 131.09 kg

DRUGS (4)
  1. GEODEN [Concomitant]
  2. RISPERDAL [Suspect]
     Indication: PSYCHOTIC DISORDER
  3. RISPERDAL [Suspect]
     Indication: PRODUCT USED FOR UNKNOWN INDICATION
  4. RISPERDAL [Suspect]
     Indication: SCHIZOPHRENIA

REACTIONS (3)
  - TYPE 2 DIABETES MELLITUS [None]
  - GYNAECOMASTIA [None]
  - HYPERGLYCAEMIA [None]
